FAERS Safety Report 9743925 (Version 1)
Quarter: 2013Q4

REPORT INFORMATION
  Report Type: Spontaneous
  Country: US (occurrence: US)
  Receive Date: 20131210
  Receipt Date: 20131210
  Transmission Date: 20140711
  Serious: No
  Sender: FDA-Public Use
  Company Number: US-BIOGENIDEC-2013BI098504

PATIENT
  Age: 49 Year
  Sex: Female
  Weight: 52 kg

DRUGS (10)
  1. TECFIDERA [Suspect]
     Indication: PRODUCT USED FOR UNKNOWN INDICATION
     Route: 048
     Dates: end: 2013
  2. TECFIDERA [Suspect]
     Indication: PRODUCT USED FOR UNKNOWN INDICATION
     Route: 048
     Dates: end: 2013
  3. AMPYRA [Concomitant]
     Route: 048
  4. LEVOTHYROXIN [Concomitant]
  5. TIZANIDINE [Concomitant]
  6. PROVIGIL [Concomitant]
  7. VITAMIN D [Concomitant]
  8. LEXAPRO [Concomitant]
  9. B COMPLEX #1 [Concomitant]
  10. GILENYA [Concomitant]

REACTIONS (5)
  - Drug intolerance [Unknown]
  - Visual acuity reduced [Recovered/Resolved]
  - Vomiting [Recovered/Resolved]
  - Diarrhoea [Recovered/Resolved]
  - Headache [Recovered/Resolved]
